FAERS Safety Report 19167643 (Version 2)
Quarter: 2021Q2

REPORT INFORMATION
  Report Type: Report from Study
  Country: US (occurrence: US)
  Receive Date: 20210422
  Receipt Date: 20210427
  Transmission Date: 20210717
  Serious: Yes (Hospitalization)
  Sender: FDA-Public Use
  Company Number: US-ROCHE-2812067

PATIENT
  Age: 62 Year
  Sex: Female
  Weight: 71.4 kg

DRUGS (5)
  1. VENETOCLAX. [Suspect]
     Active Substance: VENETOCLAX
     Indication: DIFFUSE LARGE B-CELL LYMPHOMA REFRACTORY
     Dosage: C2D1,  DAYS 1?10 OF CYCLE 1?3?LAST DOSE OF VENETOCLAX ON 15/MAR/2021
     Route: 065
     Dates: start: 20210311
  2. CARBOPLATIN. [Suspect]
     Active Substance: CARBOPLATIN
     Indication: DIFFUSE LARGE B-CELL LYMPHOMA REFRACTORY
     Dosage: AUC = 5 BASED ON COCKCROFT?GAULT CALCULATION OF GFR USING ADJUSTED BODY WEIGHT. CARBOPLATIN IS GIVE
     Route: 042
     Dates: start: 20210311
  3. IFOSFAMIDE. [Suspect]
     Active Substance: IFOSFAMIDE
     Indication: DIFFUSE LARGE B-CELL LYMPHOMA REFRACTORY
     Dosage: 5,000 MG/M^2 MIXED TOGETHER WITH MESNA AT A DOSE OF 5,000 MG/M^2 OVER 24 HOURS BEGINNING ON DAY 2 AN
     Route: 065
     Dates: start: 20210311
  4. RITUXIMAB. [Suspect]
     Active Substance: RITUXIMAB
     Indication: DIFFUSE LARGE B-CELL LYMPHOMA REFRACTORY
     Dosage: C2D1
     Route: 041
     Dates: start: 20210311
  5. ETOPOSIDE. [Suspect]
     Active Substance: ETOPOSIDE
     Indication: DIFFUSE LARGE B-CELL LYMPHOMA REFRACTORY
     Dosage: C2D1
     Route: 042
     Dates: start: 20210311

REACTIONS (1)
  - Asthenia [Recovered/Resolved]

NARRATIVE: CASE EVENT DATE: 20210413
